FAERS Safety Report 6998813-5 (Version None)
Quarter: 2010Q3

REPORT INFORMATION
  Report Type: 
  Country: None (occurrence: None)
  Receive Date: 20100920
  Receipt Date: 20070925
  Transmission Date: 20110219
  Serious: Yes (Other)
  Sender: FDA-Public Use
  Company Number: US-ASTRAZENECA-2007UW19079

PATIENT
  Age: 20005 Day
  Sex: Female
  Weight: 83 kg

DRUGS (17)
  1. SEROQUEL [Suspect]
     Indication: BIPOLAR DISORDER
     Dosage: 25 TO 150 MG, AT BEDTIME
     Route: 048
     Dates: start: 20040909
  2. SEROQUEL [Suspect]
     Indication: DEPRESSION
     Dosage: 25 TO 150 MG, AT BEDTIME
     Route: 048
     Dates: start: 20040909
  3. SEROQUEL [Suspect]
     Indication: ANXIETY
     Dosage: 25 TO 150 MG, AT BEDTIME
     Route: 048
     Dates: start: 20040909
  4. SEROQUEL [Suspect]
     Route: 048
  5. SEROQUEL [Suspect]
     Route: 048
  6. SEROQUEL [Suspect]
     Route: 048
  7. NEXIUM [Concomitant]
     Indication: GASTROOESOPHAGEAL REFLUX DISEASE
     Dosage: 40 TO 80 MG
     Dates: start: 20040908
  8. GEODON [Concomitant]
     Dosage: 60 TO 120 MG, AT NIGHT
     Dates: start: 20040604
  9. SYNTHROID [Concomitant]
     Indication: HYPOTHYROIDISM
     Dates: start: 20040826
  10. NEURONTIN [Concomitant]
     Indication: HEADACHE
     Dosage: 600 TO 1800 MG
     Dates: start: 20040605
  11. LISINOPRIL [Concomitant]
     Dates: start: 20050502
  12. WELLBUTRIN [Concomitant]
     Dates: start: 20040605
  13. ALBUTEROL [Concomitant]
     Indication: CHRONIC OBSTRUCTIVE PULMONARY DISEASE
     Dosage: 1 TO 2 PUFFS AS REQUIRED
     Route: 055
     Dates: start: 20040908
  14. LEXAPRO [Concomitant]
     Dates: start: 20040908
  15. KLONOPIN [Concomitant]
     Dosage: 2 TO 6 MG
     Dates: start: 20040605
  16. PREMARIN [Concomitant]
     Dates: start: 20040605
  17. ZOLOFT [Concomitant]
     Dates: start: 20040605

REACTIONS (2)
  - DIABETES MELLITUS [None]
  - TYPE 2 DIABETES MELLITUS [None]
